FAERS Safety Report 18980904 (Version 1)
Quarter: 2021Q1

REPORT INFORMATION
  Report Type: Spontaneous
  Country: US (occurrence: US)
  Receive Date: 20210307
  Receipt Date: 20210307
  Transmission Date: 20210420
  Serious: Yes (Death)
  Sender: FDA-Public Use
  Company Number: None

PATIENT
  Age: 89 Year
  Sex: Male
  Weight: 76.5 kg

DRUGS (21)
  1. LATANOPROST. [Concomitant]
     Active Substance: LATANOPROST
  2. BUPROPION. [Concomitant]
     Active Substance: BUPROPION
  3. CEPHALEXIN. [Concomitant]
     Active Substance: CEPHALEXIN
  4. COLESTIPOL [Concomitant]
     Active Substance: COLESTIPOL
  5. OMEPRAZOLE. [Concomitant]
     Active Substance: OMEPRAZOLE
  6. FOLIC ACID. [Concomitant]
     Active Substance: FOLIC ACID
  7. ABIRATERONE. [Suspect]
     Active Substance: ABIRATERONE ACETATE
     Indication: PROSTATE CANCER
     Route: 048
     Dates: start: 20210119, end: 20210305
  8. AMLODIPINE [Concomitant]
     Active Substance: AMLODIPINE BESYLATE
  9. VITAMIN D3 [Concomitant]
     Active Substance: CHOLECALCIFEROL
  10. ESCITALOPRAM [Concomitant]
     Active Substance: ESCITALOPRAM OXALATE
  11. GABAPENTIN. [Concomitant]
     Active Substance: GABAPENTIN
  12. SPIRONOLACTONE. [Concomitant]
     Active Substance: SPIRONOLACTONE
  13. LASIX [Concomitant]
     Active Substance: FUROSEMIDE
  14. LISINOPRIL. [Concomitant]
     Active Substance: LISINOPRIL
  15. NIASPAN [Concomitant]
     Active Substance: NIACIN
  16. TIMOLOL. [Concomitant]
     Active Substance: TIMOLOL
  17. B ? COMPLEX VITAMIN [Concomitant]
  18. CALCITRIOL. [Concomitant]
     Active Substance: CALCITRIOL
  19. FISH OIL [Concomitant]
     Active Substance: FISH OIL
  20. LACTASE [Concomitant]
     Active Substance: LACTASE
  21. MULTIVITAMIN [Concomitant]
     Active Substance: VITAMINS

REACTIONS (1)
  - Death [None]

NARRATIVE: CASE EVENT DATE: 20210307
